FAERS Safety Report 14917951 (Version 1)
Quarter: 2018Q2

REPORT INFORMATION
  Report Type: Spontaneous
  Country: FR (occurrence: FR)
  Receive Date: 20180521
  Receipt Date: 20180521
  Transmission Date: 20180711
  Serious: Yes (Other)
  Sender: FDA-Public Use
  Company Number: FR-MERCK KGAA-2048108

PATIENT
  Age: 57 Year
  Sex: Female
  Weight: 79 kg

DRUGS (1)
  1. NOVOTHYROX [Suspect]
     Active Substance: LEVOTHYROXINE SODIUM
     Indication: PRODUCT USED FOR UNKNOWN INDICATION
     Dates: start: 2017

REACTIONS (20)
  - Depression [None]
  - Anger [None]
  - Low density lipoprotein increased [None]
  - C-reactive protein increased [None]
  - Impaired work ability [None]
  - High density lipoprotein decreased [None]
  - Somnolence [None]
  - Serum ferritin increased [None]
  - Mood altered [None]
  - Irritability [None]
  - Affective disorder [None]
  - Social avoidant behaviour [None]
  - Insomnia [None]
  - Lymphocyte count increased [None]
  - Decreased interest [None]
  - Alopecia [None]
  - Blood cholesterol increased [None]
  - Red cell distribution width decreased [None]
  - Fatigue [None]
  - Mean cell haemoglobin concentration decreased [None]

NARRATIVE: CASE EVENT DATE: 2017
